FAERS Safety Report 4334624-7 (Version None)
Quarter: 2004Q1

REPORT INFORMATION
  Report Type: 
  Country: None (occurrence: None)
  Receive Date: 20040329
  Receipt Date: 20040108
  Transmission Date: 20041129
  Serious: No
  Sender: FDA-Public Use
  Company Number: 03P-163-0245941-00

PATIENT
  Age: 72 Year
  Sex: Female
  Weight: 58.9676 kg

DRUGS (13)
  1. HUMIRA [Suspect]
     Indication: RHEUMATOID ARTHRITIS
     Dosage: 40 MG, 1 IN 2 WK, SUBCUTANEOUS
     Route: 058
     Dates: start: 20031222, end: 20031226
  2. METHOTREXATE [Concomitant]
  3. MELOXICAM [Concomitant]
  4. LEVOTHYROXINE SODIUM [Concomitant]
  5. ALENDRONATE SODIUM [Concomitant]
  6. INSULIN GLARGINE [Concomitant]
  7. NOVOLOG [Concomitant]
  8. CALCIUM [Concomitant]
  9. ASCORBIC ACID [Concomitant]
  10. PYRIDOXINE HYDROCHLORIDE [Concomitant]
  11. FISH OIL [Concomitant]
  12. FOLIC ACID [Concomitant]
  13. MULTI-VITAMINS [Concomitant]

REACTIONS (1)
  - TONGUE ULCERATION [None]
